FAERS Safety Report 7680312-9 (Version None)
Quarter: 2011Q3

REPORT INFORMATION
  Report Type: 
  Country: None (occurrence: None)
  Receive Date: 20110812
  Receipt Date: 20110322
  Transmission Date: 20111222
  Serious: Yes (Hospitalization)
  Sender: FDA-Public Use
  Company Number: US-GLAXOSMITHKLINE-A0929883A

PATIENT
  Age: 24 Year
  Sex: Male
  Weight: 77.3 kg

DRUGS (2)
  1. BUPROPION HYDROCHLORIDE [Suspect]
     Indication: DEPRESSION
     Route: 048
     Dates: start: 20100901, end: 20100101
  2. NO CONCURRENT MEDICATION [Concomitant]

REACTIONS (7)
  - SUICIDAL IDEATION [None]
  - THERAPEUTIC RESPONSE DECREASED [None]
  - EDUCATIONAL PROBLEM [None]
  - DEPRESSION [None]
  - LETHARGY [None]
  - DRUG INEFFECTIVE [None]
  - LISTLESS [None]
